FAERS Safety Report 10637949 (Version 1)
Quarter: 2014Q4

REPORT INFORMATION
  Report Type: Spontaneous
  Country: US (occurrence: None)
  Receive Date: 20141204
  Receipt Date: 20141204
  Transmission Date: 20150529
  Serious: Yes (Hospitalization)
  Sender: FDA-Public Use
  Company Number: None

PATIENT
  Age: 63 Year
  Sex: Male
  Weight: 103.6 kg

DRUGS (8)
  1. REBETOL [Suspect]
     Active Substance: RIBAVIRIN
     Indication: HEPATITIS C
     Route: 048
  2. KETOROLAC [Concomitant]
     Active Substance: KETOROLAC\KETOROLAC TROMETHAMINE
  3. MULTIVITAMIN [Concomitant]
     Active Substance: VITAMINS
  4. SOVALDI [Suspect]
     Active Substance: SOFOSBUVIR
     Indication: HEPATITIS C
     Route: 048
     Dates: start: 20140307
  5. LACTULOSE. [Concomitant]
     Active Substance: LACTULOSE
  6. MOXIFLOXACIN [Concomitant]
     Active Substance: MOXIFLOXACIN
  7. PREDNISOLONE. [Concomitant]
     Active Substance: PREDNISOLONE
  8. RIFAXIMIN [Concomitant]
     Active Substance: RIFAXIMIN

REACTIONS (3)
  - Gastrointestinal haemorrhage [None]
  - Bleeding varicose vein [None]
  - Anaemia [None]

NARRATIVE: CASE EVENT DATE: 20140919
